FAERS Safety Report 8833135 (Version 2)
Quarter: 2012Q4

REPORT INFORMATION
  Report Type: 
  Country: JP (occurrence: JP)
  Receive Date: 20121010
  Receipt Date: 20121107
  Transmission Date: 20130627
  Serious: Yes (Death, Other)
  Sender: FDA-Public Use
  Company Number: JP-ASTELLAS-2012JP009367

PATIENT
  Sex: Female

DRUGS (6)
  1. PROGRAF [Suspect]
     Indication: IMMUNOSUPPRESSANT DRUG THERAPY
     Dosage: 8 mg, Unknown/D
     Route: 048
  2. PROGRAF [Suspect]
     Route: 048
  3. SOLU MEDROL [Suspect]
     Indication: IMMUNOSUPPRESSANT DRUG THERAPY
     Dosage: 20 mg, Unknown/D
     Route: 042
  4. SOLU MEDROL [Suspect]
     Route: 042
  5. CELLCEPT                           /01275102/ [Suspect]
     Indication: IMMUNOSUPPRESSANT DRUG THERAPY
     Dosage: 1000 mg, Unknown/D
     Route: 048
  6. CELLCEPT                           /01275102/ [Suspect]
     Route: 048

REACTIONS (3)
  - Drug ineffective [Unknown]
  - Hepatic cyst infection [Fatal]
  - Kidney transplant rejection [Unknown]
